FAERS Safety Report 8008538-5 (Version None)
Quarter: 2011Q4

REPORT INFORMATION
  Report Type: 
  Country: None (occurrence: None)
  Receive Date: 20111123
  Receipt Date: 20111010
  Transmission Date: 20120403
  Serious: No
  Sender: FDA-Public Use
  Company Number: 337561

PATIENT
  Sex: Female

DRUGS (1)
  1. VICTOZA [Suspect]
     Indication: PRODUCT USED FOR UNKNOWN INDICATION
     Dosage: 1.8 MG, QD, SUBCUTANEOUS, 1.2MG, QD, SUBCUTANEOUS
     Route: 058
     Dates: start: 20110604

REACTIONS (3)
  - WEIGHT DECREASED [None]
  - BLOOD GLUCOSE INCREASED [None]
  - NAUSEA [None]
